FAERS Safety Report 13209350 (Version 4)
Quarter: 2017Q4

REPORT INFORMATION
  Report Type: Report from Study
  Country: None (occurrence: US)
  Receive Date: 20170209
  Receipt Date: 20171108
  Transmission Date: 20180320
  Serious: Yes (Hospitalization, Other)
  Sender: FDA-Public Use
  Company Number: US-ABBVIE-17K-163-1864089-00

PATIENT
  Age: 62 Year
  Sex: Male
  Weight: 108.96 kg

DRUGS (9)
  1. ACETAZOLAMIDE. [Concomitant]
     Active Substance: ACETAZOLAMIDE
     Indication: PRODUCT USED FOR UNKNOWN INDICATION
  2. LANTUS [Concomitant]
     Active Substance: INSULIN GLARGINE
     Indication: DIABETES MELLITUS
  3. CARVEDILOL. [Concomitant]
     Active Substance: CARVEDILOL
     Indication: HYPERTENSION
  4. LEVOTHYROXINE. [Concomitant]
     Active Substance: LEVOTHYROXINE
     Indication: PRODUCT USED FOR UNKNOWN INDICATION
  5. HUMIRA [Suspect]
     Active Substance: ADALIMUMAB
     Indication: PSORIASIS
     Route: 058
     Dates: start: 201402, end: 20161210
  6. PRAVASTATIN. [Concomitant]
     Active Substance: PRAVASTATIN
     Indication: BLOOD CHOLESTEROL INCREASED
  7. HUMIRA [Suspect]
     Active Substance: ADALIMUMAB
     Route: 058
  8. HUMALOG R [Concomitant]
     Indication: DIABETES MELLITUS
  9. METFORMIN [Concomitant]
     Active Substance: METFORMIN HYDROCHLORIDE
     Indication: DIABETES MELLITUS

REACTIONS (13)
  - Concussion [Recovered/Resolved]
  - Oesophageal injury [Recovering/Resolving]
  - Electrolyte imbalance [Recovering/Resolving]
  - Road traffic accident [Recovered/Resolved]
  - Psoriasis [Not Recovered/Not Resolved]
  - Anaemia [Recovering/Resolving]
  - Traumatic haematoma [Recovering/Resolving]
  - Acute kidney injury [Recovering/Resolving]
  - Rib fracture [Recovered/Resolved]
  - Dysphagia [Recovered/Resolved]
  - Traumatic renal injury [Recovering/Resolving]
  - Chronic kidney disease [Not Recovered/Not Resolved]
  - Traumatic fracture [Recovering/Resolving]

NARRATIVE: CASE EVENT DATE: 201612
